FAERS Safety Report 5162788-4 (Version None)
Quarter: 2006Q4

REPORT INFORMATION
  Report Type: 
  Country: None (occurrence: None)
  Receive Date: 20061201
  Receipt Date: 20061124
  Transmission Date: 20070319
  Serious: Yes (Other)
  Sender: FDA-Public Use
  Company Number: GB-GLAXOSMITHKLINE-B0447966A

PATIENT
  Age: 35 Year
  Sex: Female

DRUGS (1)
  1. NIQUITIN 21MG [Suspect]
     Indication: SMOKING CESSATION THERAPY
     Dosage: 21MG PER DAY
     Route: 062
     Dates: start: 20061023, end: 20061025

REACTIONS (4)
  - APPLICATION SITE ERYTHEMA [None]
  - FEELING HOT [None]
  - SENSATION OF HEAVINESS [None]
  - SKIN TIGHTNESS [None]
